FAERS Safety Report 6269467-0 (Version None)
Quarter: 2009Q3

REPORT INFORMATION
  Report Type: 
  Country: None (occurrence: None)
  Receive Date: 20090715
  Receipt Date: 20080915
  Transmission Date: 20100115
  Serious: No
  Sender: FDA-Public Use
  Company Number: US-TYCO HEALTHCARE/MALLINCKRODT-T200801508

PATIENT

DRUGS (1)
  1. OXYCODONE HCL [Suspect]

REACTIONS (1)
  - BLISTER [None]
